FAERS Safety Report 13203685 (Version 1)
Quarter: 2017Q1

REPORT INFORMATION
  Report Type: Spontaneous
  Country: US (occurrence: US)
  Receive Date: 20170208
  Receipt Date: 20170208
  Transmission Date: 20170428
  Serious: No
  Sender: FDA-Public Use
  Company Number: US-AMGEN-USASP2016097945

PATIENT
  Age: 67 Year
  Sex: Female

DRUGS (2)
  1. ERIBULIN [Suspect]
     Active Substance: ERIBULIN
     Indication: PRODUCT USED FOR UNKNOWN INDICATION
     Dosage: UNK
     Route: 065
     Dates: start: 20151208
  2. NEULASTA [Suspect]
     Active Substance: PEGFILGRASTIM
     Indication: PRODUCT USED FOR UNKNOWN INDICATION
     Dosage: UNK UNK, Q2WK
     Route: 065
     Dates: start: 20151228

REACTIONS (9)
  - Malaise [Unknown]
  - Neuropathy peripheral [Unknown]
  - Application site haemorrhage [Unknown]
  - Skin irritation [Recovered/Resolved]
  - Fatigue [Unknown]
  - Drug dose omission [Unknown]
  - Application site extravasation [Unknown]
  - Peripheral swelling [Recovered/Resolved]
  - Arthralgia [Unknown]
